FAERS Safety Report 12348360 (Version 1)
Quarter: 2016Q2

REPORT INFORMATION
  Report Type: Report from Study
  Country: US (occurrence: US)
  Receive Date: 20160509
  Receipt Date: 20160509
  Transmission Date: 20160815
  Serious: Yes (Other)
  Sender: FDA-Public Use
  Company Number: US-BIOGEN-2016BI00233916

PATIENT
  Sex: Female

DRUGS (2)
  1. TYSABRI [Suspect]
     Active Substance: NATALIZUMAB
     Dosage: INFUSED OVER 1 HOUR
     Route: 042
     Dates: start: 20081029
  2. TYSABRI [Suspect]
     Active Substance: NATALIZUMAB
     Indication: MULTIPLE SCLEROSIS
     Dosage: INFUSED OVER 1 HOUR
     Route: 042
     Dates: start: 20070523, end: 20080326

REACTIONS (3)
  - Maternal exposure during pregnancy [Recovered/Resolved]
  - Vomiting in pregnancy [Recovered/Resolved]
  - Cephalo-pelvic disproportion [Not Recovered/Not Resolved]

NARRATIVE: CASE EVENT DATE: 2008
